FAERS Safety Report 6506281-2 (Version None)
Quarter: 2009Q4

REPORT INFORMATION
  Report Type: 
  Country: None (occurrence: None)
  Receive Date: 20091218
  Receipt Date: 20091214
  Transmission Date: 20100525
  Serious: Yes (Other)
  Sender: FDA-Public Use
  Company Number: US-ABBOTT-09P-163-0614312-00

PATIENT
  Sex: Male
  Weight: 79.45 kg

DRUGS (5)
  1. LEUPROLIDE ACETATE [Suspect]
     Indication: PROSTATE CANCER
     Dates: start: 20020101
  2. NITROGLYCERIN [Concomitant]
     Indication: CARDIAC DISORDER
  3. ASPIRIN [Concomitant]
     Indication: CARDIAC DISORDER
  4. METOPROLOL TARTRATE [Concomitant]
     Indication: CARDIAC DISORDER
  5. COLESTIPOL HYDROCHLORIDE [Concomitant]
     Indication: BLOOD CHOLESTEROL INCREASED

REACTIONS (3)
  - OEDEMA PERIPHERAL [None]
  - PRURITUS [None]
  - RASH [None]
